FAERS Safety Report 20593933 (Version 6)
Quarter: 2022Q2

REPORT INFORMATION
  Report Type: Report from Study
  Country: US (occurrence: US)
  Receive Date: 20220315
  Receipt Date: 20220620
  Transmission Date: 20220721
  Serious: No
  Sender: FDA-Public Use
  Company Number: US-NOVARTISTESTPH-NVSC2022US054943

PATIENT
  Sex: Male
  Weight: 95.692 kg

DRUGS (5)
  1. TREPROSTINIL [Suspect]
     Active Substance: TREPROSTINIL
     Indication: Pulmonary arterial hypertension
     Dosage: 20.5 NG/KG/MIN
     Route: 058
     Dates: start: 20220303
  2. TREPROSTINIL [Suspect]
     Active Substance: TREPROSTINIL
     Dosage: 61..3 NG/KG/MIN (CONTINUOUS)
     Route: 058
     Dates: start: 20220303
  3. TREPROSTINIL [Suspect]
     Active Substance: TREPROSTINIL
     Dosage: 68.3 NG/KG/MIN (CONTINUOUS)
     Route: 058
     Dates: start: 20220303
  4. OPSUMIT [Concomitant]
     Active Substance: MACITENTAN
     Indication: Product used for unknown indication
     Dosage: UNK
     Route: 065
  5. SILDENAFIL CITRATE [Concomitant]
     Active Substance: SILDENAFIL CITRATE
     Indication: Product used for unknown indication
     Dosage: UNK
     Route: 065

REACTIONS (15)
  - Pain in jaw [Unknown]
  - Headache [Unknown]
  - Nausea [Unknown]
  - Diarrhoea [Unknown]
  - Infusion site pain [Unknown]
  - Infusion site erythema [Unknown]
  - Injection site swelling [Recovered/Resolved]
  - Injection site infection [Unknown]
  - Overdose [Unknown]
  - Device alarm issue [Unknown]
  - Product supply issue [Unknown]
  - Wrong dose [Unknown]
  - Wrong technique in product usage process [Unknown]
  - Accidental exposure to product [Unknown]
  - Ocular hyperaemia [Unknown]
